FAERS Safety Report 8327781-9 (Version None)
Quarter: 2012Q2

REPORT INFORMATION
  Report Type: 
  Country: None (occurrence: None)
  Receive Date: 20120502
  Receipt Date: 20120424
  Transmission Date: 20120825
  Serious: No
  Sender: FDA-Public Use
  Company Number: US-PFIZER INC-2012102077

PATIENT
  Sex: Male
  Weight: 74.83 kg

DRUGS (1)
  1. ALTACE [Suspect]
     Indication: HYPERTENSION
     Dosage: 10 MG, DAILY
     Route: 048
     Dates: start: 20120214, end: 20120421

REACTIONS (9)
  - OROPHARYNGEAL DISCOMFORT [None]
  - DIARRHOEA [None]
  - ABDOMINAL DISCOMFORT [None]
  - BACK PAIN [None]
  - PRURITUS [None]
  - NECK PAIN [None]
  - DYSPEPSIA [None]
  - FEELING ABNORMAL [None]
  - WEIGHT INCREASED [None]
